FAERS Safety Report 25351988 (Version 3)
Quarter: 2025Q3

REPORT INFORMATION
  Report Type: Spontaneous
  Country: EU (occurrence: EU)
  Receive Date: 20250523
  Receipt Date: 20250924
  Transmission Date: 20251021
  Serious: Yes (Death, Other)
  Sender: SANOFI AVENTIS
  Company Number: EU-SA-2025SA144057

PATIENT
  Age: 14 Year
  Sex: Female
  Weight: 78.7 kg

DRUGS (7)
  1. CABLIVI [Suspect]
     Active Substance: CAPLACIZUMAB-YHDP
     Indication: Thrombotic thrombocytopenic purpura
     Route: 042
     Dates: start: 20250515, end: 20250515
  2. CABLIVI [Suspect]
     Active Substance: CAPLACIZUMAB-YHDP
     Indication: Thrombotic thrombocytopenic purpura
     Route: 042
     Dates: start: 20250515, end: 20250515
  3. CABLIVI [Suspect]
     Active Substance: CAPLACIZUMAB-YHDP
     Indication: Thrombotic thrombocytopenic purpura
     Route: 042
     Dates: start: 20250515, end: 20250515
  4. CABLIVI [Suspect]
     Active Substance: CAPLACIZUMAB-YHDP
     Indication: Thrombotic thrombocytopenic purpura
     Route: 042
     Dates: start: 20250515, end: 20250515
  5. PANTOPRAZOLE [Concomitant]
     Active Substance: PANTOPRAZOLE
     Indication: Steroid therapy
     Route: 042
     Dates: start: 20250514, end: 20250515
  6. PREDASOL [PREDNISOLONE] [Concomitant]
     Indication: Thrombotic thrombocytopenic purpura
     Route: 042
     Dates: start: 20250514, end: 20250515
  7. ETHAMSYLATE [Concomitant]
     Active Substance: ETHAMSYLATE
     Indication: Thrombotic thrombocytopenic purpura
     Route: 042
     Dates: start: 20250514, end: 20250515

REACTIONS (4)
  - Cardiac arrest [Fatal]
  - Altered state of consciousness [Fatal]
  - Hypotension [Fatal]
  - Bradycardia [Fatal]

NARRATIVE: CASE EVENT DATE: 20250515
